FAERS Safety Report 24855632 (Version 1)
Quarter: 2025Q1

REPORT INFORMATION
  Report Type: Spontaneous
  Country: US (occurrence: US)
  Receive Date: 20250117
  Receipt Date: 20250117
  Transmission Date: 20250409
  Serious: No
  Sender: ELI LILLY AND COMPANY
  Company Number: US-ELI_LILLY_AND_COMPANY-US202501010156

PATIENT
  Age: 37 Year
  Sex: Female

DRUGS (28)
  1. ZEPBOUND [Suspect]
     Active Substance: TIRZEPATIDE
     Indication: Glucose tolerance impaired
     Route: 058
     Dates: start: 202409
  2. ZEPBOUND [Suspect]
     Active Substance: TIRZEPATIDE
     Indication: Glucose tolerance impaired
     Route: 058
     Dates: start: 202409
  3. ZEPBOUND [Suspect]
     Active Substance: TIRZEPATIDE
     Indication: Glucose tolerance impaired
     Route: 058
     Dates: start: 202409
  4. ZEPBOUND [Suspect]
     Active Substance: TIRZEPATIDE
     Indication: Glucose tolerance impaired
     Route: 058
     Dates: start: 202409
  5. ZEPBOUND [Suspect]
     Active Substance: TIRZEPATIDE
     Indication: Weight control
     Route: 058
  6. ZEPBOUND [Suspect]
     Active Substance: TIRZEPATIDE
     Indication: Weight control
     Route: 058
  7. ZEPBOUND [Suspect]
     Active Substance: TIRZEPATIDE
     Indication: Weight control
     Route: 058
  8. ZEPBOUND [Suspect]
     Active Substance: TIRZEPATIDE
     Indication: Weight control
     Route: 058
  9. ZEPBOUND [Suspect]
     Active Substance: TIRZEPATIDE
     Indication: Blood cholesterol increased
     Route: 058
  10. ZEPBOUND [Suspect]
     Active Substance: TIRZEPATIDE
     Indication: Blood cholesterol increased
     Route: 058
  11. ZEPBOUND [Suspect]
     Active Substance: TIRZEPATIDE
     Indication: Blood cholesterol increased
     Route: 058
  12. ZEPBOUND [Suspect]
     Active Substance: TIRZEPATIDE
     Indication: Blood cholesterol increased
     Route: 058
  13. ZEPBOUND [Suspect]
     Active Substance: TIRZEPATIDE
     Route: 058
  14. ZEPBOUND [Suspect]
     Active Substance: TIRZEPATIDE
     Route: 058
  15. ZEPBOUND [Suspect]
     Active Substance: TIRZEPATIDE
     Route: 058
  16. ZEPBOUND [Suspect]
     Active Substance: TIRZEPATIDE
     Route: 058
  17. MOUNJARO [Suspect]
     Active Substance: TIRZEPATIDE
     Indication: Glucose tolerance impaired
     Route: 058
  18. MOUNJARO [Suspect]
     Active Substance: TIRZEPATIDE
     Indication: Glucose tolerance impaired
     Route: 058
  19. MOUNJARO [Suspect]
     Active Substance: TIRZEPATIDE
     Indication: Glucose tolerance impaired
     Route: 058
  20. MOUNJARO [Suspect]
     Active Substance: TIRZEPATIDE
     Indication: Glucose tolerance impaired
     Route: 058
  21. MOUNJARO [Suspect]
     Active Substance: TIRZEPATIDE
     Indication: Weight control
  22. MOUNJARO [Suspect]
     Active Substance: TIRZEPATIDE
     Indication: Weight control
  23. MOUNJARO [Suspect]
     Active Substance: TIRZEPATIDE
     Indication: Weight control
  24. MOUNJARO [Suspect]
     Active Substance: TIRZEPATIDE
     Indication: Weight control
  25. MOUNJARO [Suspect]
     Active Substance: TIRZEPATIDE
     Indication: Blood cholesterol increased
  26. MOUNJARO [Suspect]
     Active Substance: TIRZEPATIDE
     Indication: Blood cholesterol increased
  27. MOUNJARO [Suspect]
     Active Substance: TIRZEPATIDE
     Indication: Blood cholesterol increased
  28. MOUNJARO [Suspect]
     Active Substance: TIRZEPATIDE
     Indication: Blood cholesterol increased

REACTIONS (7)
  - Off label use [Unknown]
  - Incorrect dose administered [Unknown]
  - Pain [Unknown]
  - Gastroenteritis viral [Unknown]
  - Dizziness [Unknown]
  - Nausea [Unknown]
  - Vomiting [Unknown]
